FAERS Safety Report 18667338 (Version 7)
Quarter: 2021Q4

REPORT INFORMATION
  Report Type: Spontaneous
  Country: US (occurrence: US)
  Receive Date: 20201228
  Receipt Date: 20211214
  Transmission Date: 20220303
  Serious: Yes (Death, Hospitalization, Other)
  Sender: FDA-Public Use
  Company Number: US-GLOBAL BLOOD THERAPEUTICS INC-US-GBT-20-04145

PATIENT
  Age: 36 Year
  Sex: Female

DRUGS (21)
  1. OXBRYTA [Suspect]
     Active Substance: VOXELOTOR
     Indication: Sickle cell disease
     Route: 048
  2. OXBRYTA [Suspect]
     Active Substance: VOXELOTOR
     Route: 048
  3. FERRIPROX [Concomitant]
     Active Substance: DEFERIPRONE
     Indication: Haemochromatosis
     Dosage: IN THE MORNING AND AT BEDTIME
  4. NORVASC [Concomitant]
     Active Substance: AMLODIPINE BESYLATE
     Indication: Hypertension
     Route: 048
  5. HYPROMELLOSES [Concomitant]
     Active Substance: HYPROMELLOSES
     Indication: Dry eye
     Dosage: 0.3% DROP SOLN.; PLACE 1 DROP INTO BOTH EYES 2 TIMES DAILY AS NEEDED; 30 ML BOTTLE
     Route: 047
  6. BUMEX [Concomitant]
     Active Substance: BUMETANIDE
     Indication: Product used for unknown indication
     Dosage: NOT PROVIDED
  7. VITAMIN D3 [Concomitant]
     Active Substance: CHOLECALCIFEROL
     Indication: Product used for unknown indication
  8. PEPCID [Concomitant]
     Active Substance: FAMOTIDINE
     Indication: Product used for unknown indication
     Route: 048
  9. FOLVITE [Concomitant]
     Active Substance: FOLIC ACID
     Indication: Product used for unknown indication
     Route: 048
  10. HYDREA [Concomitant]
     Active Substance: HYDROXYUREA
     Indication: Product used for unknown indication
     Route: 048
  11. HYDREA [Concomitant]
     Active Substance: HYDROXYUREA
     Dosage: PATIENT ALTERNATES 1 GRAM WITH 1.5 GRAM EVERY OTHER DAY
     Route: 048
  12. CLARITIN [Concomitant]
     Active Substance: LORATADINE
     Indication: Product used for unknown indication
     Route: 048
  13. ROXICODONE [Concomitant]
     Active Substance: OXYCODONE HYDROCHLORIDE
     Indication: Product used for unknown indication
     Dosage: NOT PROVIDED
  14. RENVELA [Concomitant]
     Active Substance: SEVELAMER CARBONATE
     Indication: Product used for unknown indication
     Dosage: WITH MEALS
     Route: 048
  15. SODIUM BICARBONATE [Concomitant]
     Active Substance: SODIUM BICARBONATE
     Indication: Product used for unknown indication
     Route: 048
  16. ZANAFLEX [Concomitant]
     Active Substance: TIZANIDINE HYDROCHLORIDE
     Indication: Muscle spasms
     Dosage: AS NEEDED
     Route: 048
  17. DEMADEX [Concomitant]
     Active Substance: TORSEMIDE
     Indication: Product used for unknown indication
     Dosage: IN THE MORNING AND AT BEDTIME
     Route: 048
  18. VEETID [Concomitant]
     Indication: Product used for unknown indication
     Route: 048
  19. HUMAN RED BLOOD CELL [Concomitant]
     Active Substance: HUMAN RED BLOOD CELL
     Indication: Sickle cell disease
     Dosage: ALLOIMUNIZATION: ANTI E, ANTI C CURRENT CHRONIC TRANSFUSION REGIMEN START
     Dates: start: 20050215
  20. HUMAN RED BLOOD CELL [Concomitant]
     Active Substance: HUMAN RED BLOOD CELL
     Dates: start: 20040825
  21. HUMAN RED BLOOD CELL [Concomitant]
     Active Substance: HUMAN RED BLOOD CELL
     Dosage: WAS ON APHARESIS
     Dates: start: 20080126

REACTIONS (24)
  - Gastrointestinal haemorrhage [Fatal]
  - Pericardial effusion [Fatal]
  - Ascites [Fatal]
  - Hepatic fibrosis [Fatal]
  - Systemic infection [Fatal]
  - Renal failure [Fatal]
  - Sickle cell disease [Fatal]
  - Sickle cell anaemia with crisis [Unknown]
  - Spontaneous bacterial peritonitis [Unknown]
  - Systemic inflammatory response syndrome [Unknown]
  - Hepatic cirrhosis [Unknown]
  - Dialysis [Unknown]
  - Surgery [Unknown]
  - Myocardial infarction [Unknown]
  - Road traffic accident [Unknown]
  - Hand fracture [Unknown]
  - Liver disorder [Unknown]
  - Haemoglobin decreased [Recovered/Resolved]
  - Amnesia [Recovered/Resolved]
  - Decreased appetite [Unknown]
  - Abdominal pain [Unknown]
  - Product use complaint [Unknown]
  - Treatment noncompliance [Unknown]
  - Off label use [Unknown]

NARRATIVE: CASE EVENT DATE: 20201211
